FAERS Safety Report 25391333 (Version 1)
Quarter: 2025Q2

REPORT INFORMATION
  Report Type: Spontaneous
  Country: US (occurrence: US)
  Receive Date: 20250603
  Receipt Date: 20250603
  Transmission Date: 20250716
  Serious: No
  Sender: ELI LILLY AND COMPANY
  Company Number: US-ELI_LILLY_AND_COMPANY-US202505021445

PATIENT
  Age: 53 Year
  Sex: Female

DRUGS (8)
  1. ZEPBOUND [Suspect]
     Active Substance: TIRZEPATIDE
     Indication: Weight control
     Route: 065
     Dates: start: 20250522
  2. ZEPBOUND [Suspect]
     Active Substance: TIRZEPATIDE
     Indication: Weight control
     Route: 065
     Dates: start: 20250522
  3. ZEPBOUND [Suspect]
     Active Substance: TIRZEPATIDE
     Indication: Weight control
     Route: 065
     Dates: start: 20250522
  4. ZEPBOUND [Suspect]
     Active Substance: TIRZEPATIDE
     Indication: Weight control
     Route: 065
     Dates: start: 20250522
  5. ZEPBOUND [Suspect]
     Active Substance: TIRZEPATIDE
     Indication: Insulin resistance
  6. ZEPBOUND [Suspect]
     Active Substance: TIRZEPATIDE
     Indication: Insulin resistance
  7. ZEPBOUND [Suspect]
     Active Substance: TIRZEPATIDE
     Indication: Insulin resistance
  8. ZEPBOUND [Suspect]
     Active Substance: TIRZEPATIDE
     Indication: Insulin resistance

REACTIONS (4)
  - Product administered at inappropriate site [Unknown]
  - Wrong technique in product usage process [Unknown]
  - Extra dose administered [Unknown]
  - Injection site pain [Unknown]

NARRATIVE: CASE EVENT DATE: 20250522
